FAERS Safety Report 6348207-0 (Version None)
Quarter: 2009Q3

REPORT INFORMATION
  Report Type: 
  Country: None (occurrence: None)
  Receive Date: 20090910
  Receipt Date: 20090902
  Transmission Date: 20100115
  Serious: Yes (Death, Other)
  Sender: FDA-Public Use
  Company Number: US-BAXTER-2009BH006645

PATIENT
  Age: 65 Year
  Sex: Male
  Weight: 94 kg

DRUGS (8)
  1. HEPARIN SODIUM INJECTION [Suspect]
     Indication: ANTICOAGULANT THERAPY
     Route: 065
     Dates: start: 20070301, end: 20070401
  2. HEPARIN SODIUM 1,000 UNITS AND SODIUM CHLORIDE 0.9% [Suspect]
     Indication: ANTICOAGULANT THERAPY
     Route: 042
     Dates: start: 20070301, end: 20070401
  3. WARFARIN SODIUM [Concomitant]
     Indication: ATRIAL FIBRILLATION
     Route: 048
  4. LIPITOR [Concomitant]
     Indication: CARDIAC DISORDER
     Route: 048
  5. CELEBREX [Concomitant]
     Indication: DRUG USE FOR UNKNOWN INDICATION
     Route: 065
  6. PREVACID [Concomitant]
     Indication: DYSPEPSIA
     Route: 048
  7. ASPIRIN [Concomitant]
     Indication: ATRIAL FIBRILLATION
     Route: 048
  8. AMIODARONE HCL [Concomitant]
     Indication: DRUG USE FOR UNKNOWN INDICATION
     Route: 065

REACTIONS (10)
  - CARDIAC FAILURE CONGESTIVE [None]
  - CEREBROVASCULAR ACCIDENT [None]
  - COAGULOPATHY [None]
  - COLON CANCER [None]
  - HAEMOPTYSIS [None]
  - PNEUMONIA [None]
  - PULMONARY OEDEMA [None]
  - SEPSIS [None]
  - SEPTIC SHOCK [None]
  - URINARY TRACT INFECTION [None]
